FAERS Safety Report 10694617 (Version 2)
Quarter: 2015Q1

REPORT INFORMATION
  Report Type: Report from Study
  Country: CA (occurrence: CA)
  Receive Date: 20150107
  Receipt Date: 20150107
  Transmission Date: 20150721
  Serious: Yes (Other)
  Sender: FDA-Public Use
  Company Number: CA-JNJFOC-20140514170

PATIENT
  Age: 76 Year
  Sex: Female
  Weight: 50.5 kg

DRUGS (2)
  1. REMICADE [Suspect]
     Active Substance: INFLIXIMAB
     Indication: CROHN^S DISEASE
     Route: 042
     Dates: start: 20130114
  2. REMICADE [Suspect]
     Active Substance: INFLIXIMAB
     Indication: CROHN^S DISEASE
     Route: 042
     Dates: start: 20141230

REACTIONS (3)
  - Wound [Not Recovered/Not Resolved]
  - Skin papilloma [Unknown]
  - Skin cancer [Unknown]

NARRATIVE: CASE EVENT DATE: 201312
